FAERS Safety Report 7780980-7 (Version None)
Quarter: 2011Q3

REPORT INFORMATION
  Report Type: 
  Country: None (occurrence: None)
  Receive Date: 20110927
  Receipt Date: 20110912
  Transmission Date: 20111222
  Serious: Yes (Other)
  Sender: FDA-Public Use
  Company Number: PHHY2011FR76287

PATIENT
  Sex: Female
  Weight: 53 kg

DRUGS (6)
  1. RASILEZ [Suspect]
     Indication: HYPERTENSION
     Dosage: 150 MG, QD
     Dates: start: 20110404, end: 20110717
  2. IPERTEN [Concomitant]
     Indication: HYPERTENSION
     Dosage: 5 MG, UNK
  3. IPERTEN [Concomitant]
     Dosage: 20 MG, QD
  4. CRESTOR [Concomitant]
     Indication: HYPERCHOLESTEROLAEMIA
     Dosage: 5 MG, QD
  5. RASILEZ [Suspect]
     Dosage: 300 MG, QD
     Dates: start: 20110718, end: 20110822
  6. ATENOLOL [Concomitant]
     Indication: HYPERTENSION
     Dosage: 50 MG DAILY

REACTIONS (2)
  - RENAL FAILURE [None]
  - RENAL IMPAIRMENT [None]
